FAERS Safety Report 10548988 (Version 1)
Quarter: 2014Q4

REPORT INFORMATION
  Report Type: Spontaneous
  Country: US (occurrence: None)
  Receive Date: 20141015
  Receipt Date: 20141015
  Transmission Date: 20150529
  Serious: No
  Sender: FDA-Public Use
  Company Number: 2014US003421

PATIENT
  Age: 86 Year
  Sex: Male

DRUGS (8)
  1. ICLUSIG [Suspect]
     Active Substance: PONATINIB
     Indication: CHRONIC MYELOID LEUKAEMIA
     Route: 048
     Dates: start: 20140620
  2. PRAVASTATIN SODIUM. [Concomitant]
     Active Substance: PRAVASTATIN SODIUM
  3. RANITIDINE HCL (RANITIDINE HYDROCHLORIDE) [Concomitant]
  4. MELOXICAM. [Concomitant]
     Active Substance: MELOXICAM
  5. CLOPIDOGREL BISULFATE. [Concomitant]
     Active Substance: CLOPIDOGREL BISULFATE
  6. METOPROLOL TARTRATE. [Concomitant]
     Active Substance: METOPROLOL TARTRATE
  7. CITALOPRAM HYDROCHLORIDE [Concomitant]
     Active Substance: CITALOPRAM HYDROCHLORIDE
  8. LORAZEPAM. [Concomitant]
     Active Substance: LORAZEPAM

REACTIONS (1)
  - Constipation [None]

NARRATIVE: CASE EVENT DATE: 20140701
